FAERS Safety Report 26203490 (Version 1)
Quarter: 2025Q4

REPORT INFORMATION
  Report Type: Spontaneous
  Country: US (occurrence: US)
  Receive Date: 20251226
  Receipt Date: 20251226
  Transmission Date: 20260117
  Serious: No
  Sender: ROCHE
  Company Number: US-ROCHE-10000462660

PATIENT
  Age: 36 Year
  Sex: Female
  Weight: 87.99 kg

DRUGS (4)
  1. OCREVUS [Suspect]
     Active Substance: OCRELIZUMAB
     Indication: Relapsing-remitting multiple sclerosis
     Dosage: 30MG/ML
     Route: 042
     Dates: start: 20230805, end: 20250215
  2. CLINDAMYCIN [Concomitant]
     Active Substance: CLINDAMYCIN
     Indication: Desquamative inflammatory vaginitis
     Dosage: ONCE DAILY TWICE A WEEK
     Route: 067
     Dates: start: 202504
  3. CLINDAMYCIN [Concomitant]
     Active Substance: CLINDAMYCIN
     Dosage: FOR 28 DAYS
     Route: 067
     Dates: start: 202504
  4. BETAMETHASONE DIPROPIONATE [Concomitant]
     Active Substance: BETAMETHASONE DIPROPIONATE
     Indication: Vulvovaginal discomfort
     Dosage: ONCE OR TWICE DAILY
     Route: 061
     Dates: start: 202404

REACTIONS (10)
  - Desquamative inflammatory vaginitis [Not Recovered/Not Resolved]
  - Inflammation [Not Recovered/Not Resolved]
  - Discharge [Not Recovered/Not Resolved]
  - Vulvar erosion [Not Recovered/Not Resolved]
  - Urine abnormality [Unknown]
  - Skin irritation [Not Recovered/Not Resolved]
  - White blood cell count increased [Unknown]
  - Discomfort [Unknown]
  - Pain [Unknown]
  - Off label use [Unknown]

NARRATIVE: CASE EVENT DATE: 20240801
